FAERS Safety Report 7394199-5 (Version None)
Quarter: 2011Q2

REPORT INFORMATION
  Report Type: 
  Country: None (occurrence: None)
  Receive Date: 20110405
  Receipt Date: 20110328
  Transmission Date: 20111010
  Serious: Yes (Hospitalization)
  Sender: FDA-Public Use
  Company Number: AR-ELI_LILLY_AND_COMPANY-AR201103008156

PATIENT
  Sex: Male

DRUGS (2)
  1. METFORMIN [Concomitant]
     Dosage: UNK
     Dates: end: 20110301
  2. BYETTA [Suspect]
     Indication: TYPE 2 DIABETES MELLITUS
     Dosage: 10 UG, BID
     Dates: start: 20100701, end: 20110301

REACTIONS (1)
  - HEPATITIS B [None]
